FAERS Safety Report 5150554-5 (Version None)
Quarter: 2006Q4

REPORT INFORMATION
  Report Type: 
  Country: None (occurrence: None)
  Receive Date: 20061110
  Receipt Date: 20061110
  Transmission Date: 20070319
  Serious: Yes (Other)
  Sender: FDA-Public Use
  Company Number: None

PATIENT
  Age: 35 Year
  Sex: Female
  Weight: 54.4316 kg

DRUGS (2)
  1. EXTRA STRENGTH PAIN RELIEVER   500 MG     EQUATE [Suspect]
     Indication: HEADACHE
     Dosage: 2 CAPLETS  AS NEEDED   PO
     Route: 048
  2. EXTRA STRENGTH PAIN RELIVER    500 MG    EQUATE [Suspect]
     Indication: HEADACHE
     Dosage: 2 CAPLETS   AS NEEDED  PO
     Route: 048

REACTIONS (3)
  - ALLERGY TO METALS [None]
  - DERMATITIS ALLERGIC [None]
  - POOR QUALITY DRUG ADMINISTERED [None]
